APPROVED DRUG PRODUCT: TEMIXYS
Active Ingredient: LAMIVUDINE; TENOFOVIR DISOPROXIL FUMARATE
Strength: 300MG;300MG
Dosage Form/Route: TABLET;ORAL
Application: N211284 | Product #001
Applicant: CHARTWELL RX SCIENCES LLC
Approved: Nov 16, 2018 | RLD: Yes | RS: No | Type: DISCN